FAERS Safety Report 12147571 (Version 1)
Quarter: 2016Q1

REPORT INFORMATION
  Report Type: Spontaneous
  Country: DE (occurrence: DE)
  Receive Date: 20160304
  Receipt Date: 20160304
  Transmission Date: 20160526
  Serious: Yes (Death, Hospitalization)
  Sender: FDA-Public Use
  Company Number: DE-JNJFOC-20160300199

PATIENT
  Age: 74 Year
  Sex: Male

DRUGS (4)
  1. TORASEMIDE [Suspect]
     Active Substance: TORSEMIDE
     Indication: PRODUCT USED FOR UNKNOWN INDICATION
     Route: 065
     Dates: start: 20150114
  2. RISPERIDONE. [Suspect]
     Active Substance: RISPERIDONE
     Indication: PRODUCT USED FOR UNKNOWN INDICATION
     Route: 065
     Dates: end: 2015
  3. RISPERIDONE. [Suspect]
     Active Substance: RISPERIDONE
     Indication: PRODUCT USED FOR UNKNOWN INDICATION
     Route: 065
     Dates: start: 2015
  4. TORASEMIDE [Suspect]
     Active Substance: TORSEMIDE
     Indication: PRODUCT USED FOR UNKNOWN INDICATION
     Route: 065
     Dates: end: 20150113

REACTIONS (25)
  - Unresponsive to stimuli [Unknown]
  - Joint stiffness [Unknown]
  - Asthenia [Unknown]
  - Onychomycosis [Unknown]
  - Sedation [Unknown]
  - Swelling [Unknown]
  - Myocardial infarction [Fatal]
  - Muscle spasms [Unknown]
  - Dandruff [Unknown]
  - Eczema [Unknown]
  - Renal failure [Fatal]
  - Muscular weakness [Unknown]
  - Posture abnormal [Unknown]
  - Erythema [Unknown]
  - Rhinorrhoea [Unknown]
  - Language disorder [Unknown]
  - Hypersomnia [Unknown]
  - Face oedema [Unknown]
  - Urinary incontinence [Unknown]
  - Anal incontinence [Unknown]
  - Oedema peripheral [Unknown]
  - Pyrexia [Fatal]
  - Decreased interest [Unknown]
  - Dyskinesia [Unknown]
  - Infection [Fatal]

NARRATIVE: CASE EVENT DATE: 2015
